FAERS Safety Report 16554369 (Version 1)
Quarter: 2019Q3

REPORT INFORMATION
  Report Type: Spontaneous
  Country: US (occurrence: US)
  Receive Date: 20190710
  Receipt Date: 20190710
  Transmission Date: 20191004
  Serious: No
  Sender: FDA-Public Use
  Company Number: US-BIOGEN-2019BI00757866

PATIENT
  Age: 39 Year
  Sex: Female

DRUGS (1)
  1. TECFIDERA [Suspect]
     Active Substance: DIMETHYL FUMARATE
     Indication: MULTIPLE SCLEROSIS
     Route: 048
     Dates: start: 20130411, end: 20140206

REACTIONS (7)
  - Bradycardia [Not Recovered/Not Resolved]
  - White blood cell count decreased [Recovered/Resolved]
  - Hypersensitivity [Recovered/Resolved]
  - Postural orthostatic tachycardia syndrome [Not Recovered/Not Resolved]
  - Gastric disorder [Not Recovered/Not Resolved]
  - Swelling [Recovered/Resolved]
  - Anaemia [Not Recovered/Not Resolved]

NARRATIVE: CASE EVENT DATE: 20130411
